FAERS Safety Report 9060536 (Version 3)
Quarter: 2014Q2

REPORT INFORMATION
  Report Type: Spontaneous
  Country: NO (occurrence: NO)
  Receive Date: 20130212
  Receipt Date: 20140428
  Transmission Date: 20141212
  Serious: Yes (Life-Threatening, Hospitalization)
  Sender: FDA-Public Use
  Company Number: NO-NICOBRDEVP-2013-02221

PATIENT
  Sex: Male

DRUGS (7)
  1. METOPROLOL TARTRATE (UNKNOWN) [Suspect]
     Indication: PRODUCT USED FOR UNKNOWN INDICATION
     Dosage: UNK
     Route: 065
  2. PREDNISOLONE (UNKNOWN) [Suspect]
     Indication: MYASTHENIA GRAVIS
     Dosage: 60 MG, DAILY
     Route: 048
  3. PREDNISOLONE (UNKNOWN) [Suspect]
     Dosage: 20 MG EVERY SECOND DAY
     Route: 065
  4. METHYLPREDNISOLONE (UNKNOWN) [Suspect]
     Indication: MYASTHENIA GRAVIS
     Dosage: 1000 MG, DAILY
     Route: 042
  5. GABAPENTIN (UNKNOWN) [Suspect]
     Indication: CHEST PAIN
     Dosage: UNK
     Route: 065
  6. PYRIDOSTIGMINE [Suspect]
     Indication: MUSCULAR WEAKNESS
     Dosage: 40 MG, FIVE TIMES
     Route: 065
  7. PYRIDOSTIGMINE [Suspect]
     Dosage: 60 MG,FIVE TIMES /DAY
     Route: 065

REACTIONS (3)
  - Myasthenia gravis [Recovered/Resolved]
  - Myocardial infarction [Recovered/Resolved]
  - Pneumonia [Recovered/Resolved]
